FAERS Safety Report 22245147 (Version 1)
Quarter: 2023Q2

REPORT INFORMATION
  Report Type: Other
  Country: BD (occurrence: None)
  Receive Date: 20230424
  Receipt Date: 20230424
  Transmission Date: 20230722
  Serious: Yes (Death)
  Sender: FDA-Public Use
  Company Number: BD-ROCHE-3322813

PATIENT
  Age: 59 Year
  Sex: Female

DRUGS (2)
  1. TECENTRIQ [Suspect]
     Active Substance: ATEZOLIZUMAB
     Indication: Hepatocellular carcinoma
     Dosage: 1 VIAL IN 250 ML OF NORMAL SALINE
     Route: 042
     Dates: start: 20230323
  2. AVASTIN [Suspect]
     Active Substance: BEVACIZUMAB
     Indication: Hepatocellular carcinoma
     Dosage: 1 VIAL IV IN 500 ML OF NORMAL SALINE
     Route: 042
     Dates: start: 20230323

REACTIONS (2)
  - Internal haemorrhage [Fatal]
  - Weight decreased [Unknown]

NARRATIVE: CASE EVENT DATE: 20230416
